FAERS Safety Report 9842777 (Version 1)
Quarter: 2013Q4

REPORT INFORMATION
  Report Type: Spontaneous
  Country: US (occurrence: None)
  Receive Date: 20131223
  Receipt Date: 20131223
  Transmission Date: 20140711
  Serious: No
  Sender: FDA-Public Use
  Company Number: 222272LEO

PATIENT
  Sex: Female

DRUGS (1)
  1. PICATO (0.05%, GEL) [Suspect]
     Indication: ACTINIC KERATOSIS
     Dosage: 1 DF (ONE DAILY TIMES 2 DAYS, TOPICAL
     Route: 061
     Dates: start: 20130608

REACTIONS (2)
  - Accidental exposure to product [None]
  - Blister [None]
